FAERS Safety Report 17537061 (Version 1)
Quarter: 2020Q1

REPORT INFORMATION
  Report Type: Spontaneous
  Country: US (occurrence: US)
  Receive Date: 20200305
  Receipt Date: 20200305
  Transmission Date: 20200409
  Serious: Yes (Hospitalization)
  Sender: FDA-Public Use
  Company Number: None

PATIENT
  Sex: Female

DRUGS (1)
  1. CINACALCET HCL 30 MG [Suspect]
     Active Substance: CINACALCET HYDROCHLORIDE
     Indication: METASTASES TO LUNG
     Route: 048
     Dates: start: 202001

REACTIONS (2)
  - Disease complication [None]
  - Neoplasm malignant [None]
